FAERS Safety Report 8307279-4 (Version None)
Quarter: 2012Q2

REPORT INFORMATION
  Report Type: 
  Country: None (occurrence: None)
  Receive Date: 20120424
  Receipt Date: 20120412
  Transmission Date: 20120825
  Serious: Yes (Hospitalization)
  Sender: FDA-Public Use
  Company Number: FR-JNJFOC-20120406025

PATIENT
  Sex: Female
  Weight: 31 kg

DRUGS (3)
  1. REMICADE [Suspect]
     Route: 042
     Dates: start: 20120222
  2. REMICADE [Suspect]
     Indication: CROHN'S DISEASE
     Route: 042
     Dates: start: 20100617
  3. AZATHIOPRINE [Concomitant]

REACTIONS (4)
  - CROHN'S DISEASE [None]
  - DEVICE RELATED INFECTION [None]
  - DEVICE RELATED SEPSIS [None]
  - CONDITION AGGRAVATED [None]
